FAERS Safety Report 10199771 (Version 1)
Quarter: 2014Q2

REPORT INFORMATION
  Report Type: Spontaneous
  Country: US (occurrence: US)
  Receive Date: 20140527
  Receipt Date: 20140527
  Transmission Date: 20141212
  Serious: Yes (Other)
  Sender: FDA-Public Use
  Company Number: CHPA2014US006995

PATIENT
  Age: 54 Year
  Sex: Male

DRUGS (2)
  1. PRIVATE LABEL STEP 1 21MG ACCT UNKNOWN [Suspect]
     Indication: SMOKING CESSATION THERAPY
     Dosage: UNK
     Route: 062
     Dates: start: 201404, end: 20140517
  2. NICOTINE GUM [Suspect]
     Dosage: UNK
     Route: 048
     Dates: start: 20140319

REACTIONS (7)
  - Sensory loss [Not Recovered/Not Resolved]
  - Musculoskeletal pain [Not Recovered/Not Resolved]
  - Pain in extremity [Not Recovered/Not Resolved]
  - Paraesthesia [Not Recovered/Not Resolved]
  - Eye discharge [Unknown]
  - Headache [Unknown]
  - Vision blurred [Unknown]
